FAERS Safety Report 21849105 (Version 1)
Quarter: 2023Q1

REPORT INFORMATION
  Report Type: Spontaneous
  Country: US (occurrence: None)
  Receive Date: 20230111
  Receipt Date: 20230111
  Transmission Date: 20230418
  Serious: Yes (Hospitalization)
  Sender: FDA-Public Use
  Company Number: None

PATIENT
  Sex: Female
  Weight: 52.7 kg

DRUGS (4)
  1. CYCLOPHOSPHAMIDE [Suspect]
     Active Substance: CYCLOPHOSPHAMIDE
     Dates: end: 20221209
  2. CYTARABINE [Suspect]
     Active Substance: CYTARABINE
     Dates: end: 20221219
  3. MERCAPTOPURINE [Suspect]
     Active Substance: MERCAPTOPURINE
     Dates: end: 20221219
  4. METHOTREXATE [Suspect]
     Active Substance: METHOTREXATE
     Dates: end: 20221215

REACTIONS (10)
  - Neutrophil count decreased [None]
  - Blood product transfusion dependent [None]
  - Epistaxis [None]
  - Heavy menstrual bleeding [None]
  - Skin mass [None]
  - Trichosporon infection [None]
  - Mucosal inflammation [None]
  - Febrile neutropenia [None]
  - Encephalopathy [None]
  - Depressed level of consciousness [None]

NARRATIVE: CASE EVENT DATE: 20221221
